FAERS Safety Report 13261518 (Version 1)
Quarter: 2017Q1

REPORT INFORMATION
  Report Type: Spontaneous
  Country: US (occurrence: US)
  Receive Date: 20170222
  Receipt Date: 20170222
  Transmission Date: 20170428
  Serious: Yes (Other)
  Sender: FDA-Public Use
  Company Number: US-ELI_LILLY_AND_COMPANY-US201608001890

PATIENT
  Sex: Female

DRUGS (6)
  1. CYMBALTA [Interacting]
     Active Substance: DULOXETINE HYDROCHLORIDE
     Dosage: 30 MG, QD
     Route: 048
     Dates: start: 20140403
  2. CYMBALTA [Interacting]
     Active Substance: DULOXETINE HYDROCHLORIDE
     Dosage: 60 MG, QD
     Route: 048
     Dates: end: 201402
  3. CYMBALTA [Interacting]
     Active Substance: DULOXETINE HYDROCHLORIDE
     Dosage: 60 MG, QD
     Route: 048
     Dates: start: 201404
  4. TAMOXIFEN CITRATE. [Interacting]
     Active Substance: TAMOXIFEN CITRATE
     Indication: BRCA1 GENE MUTATION
     Dosage: 20 MG, QD
     Route: 048
  5. CYMBALTA [Suspect]
     Active Substance: DULOXETINE HYDROCHLORIDE
     Indication: DEPRESSION
     Dosage: 60 MG, QD
     Route: 048
     Dates: start: 20070418
  6. CYMBALTA [Interacting]
     Active Substance: DULOXETINE HYDROCHLORIDE
     Dosage: 90 MG, QD
     Route: 048
     Dates: start: 20080114

REACTIONS (13)
  - Drug interaction [Unknown]
  - Affect lability [Unknown]
  - Dysphoria [Unknown]
  - Anxiety [Unknown]
  - Suicidal ideation [Unknown]
  - Depression [Unknown]
  - Lethargy [Unknown]
  - Drug withdrawal syndrome [Unknown]
  - Nausea [Unknown]
  - Fatigue [Unknown]
  - Paraesthesia [Unknown]
  - Dizziness [Unknown]
  - Insomnia [Unknown]
